FAERS Safety Report 14239990 (Version 7)
Quarter: 2019Q3

REPORT INFORMATION
  Report Type: Report from Study
  Country: US (occurrence: US)
  Receive Date: 20171130
  Receipt Date: 20190702
  Transmission Date: 20191004
  Serious: Yes (Hospitalization, Other)
  Sender: FDA-Public Use
  Company Number: US-ARIAD PHARMACEUTICALS, INC-2017US009023

PATIENT
  Sex: Female
  Weight: 107 kg

DRUGS (3)
  1. PONATINIB [Suspect]
     Active Substance: PONATINIB
     Dosage: 30 MILLIGRAM, QD
     Route: 048
  2. PONATINIB [Suspect]
     Active Substance: PONATINIB
     Dosage: 15 MILLIGRAM, QD
     Route: 048
  3. PONATINIB [Suspect]
     Active Substance: PONATINIB
     Indication: CHRONIC MYELOID LEUKAEMIA
     Dosage: 45 MILLIGRAM, QD
     Route: 048
     Dates: start: 20141024

REACTIONS (11)
  - Mass [Unknown]
  - Malaise [Unknown]
  - Seasonal allergy [Unknown]
  - Tendonitis [Unknown]
  - Gastric disorder [Unknown]
  - Aphonia [Unknown]
  - Nausea [Recovering/Resolving]
  - Intestinal obstruction [Unknown]
  - Cough [Unknown]
  - Abdominal pain upper [Unknown]
  - Rash [Unknown]
